FAERS Safety Report 24875543 (Version 1)
Quarter: 2025Q1

REPORT INFORMATION
  Report Type: Spontaneous
  Country: TW (occurrence: TW)
  Receive Date: 20250122
  Receipt Date: 20250122
  Transmission Date: 20250408
  Serious: Yes (Other)
  Sender: COVIS PHARMA GMBH
  Company Number: TW-Covis Pharma GmbH-2025COV00079

PATIENT
  Age: 75 Year
  Sex: Male

DRUGS (30)
  1. RILUZOLE [Suspect]
     Active Substance: RILUZOLE
     Indication: Amyotrophic lateral sclerosis
     Route: 048
     Dates: start: 20210303, end: 20210324
  2. RILUZOLE [Suspect]
     Active Substance: RILUZOLE
     Route: 048
     Dates: start: 20210324, end: 20210414
  3. RILUZOLE [Suspect]
     Active Substance: RILUZOLE
     Route: 048
     Dates: start: 20210414, end: 20210506
  4. RILUZOLE [Suspect]
     Active Substance: RILUZOLE
     Route: 048
     Dates: start: 20210507, end: 20210521
  5. RILUZOLE [Suspect]
     Active Substance: RILUZOLE
     Route: 048
     Dates: start: 20210629, end: 20210702
  6. RILUZOLE [Suspect]
     Active Substance: RILUZOLE
     Route: 048
     Dates: start: 20210703, end: 20210713
  7. RILUZOLE [Suspect]
     Active Substance: RILUZOLE
     Route: 048
     Dates: start: 20210728, end: 20210818
  8. RILUZOLE [Suspect]
     Active Substance: RILUZOLE
     Route: 048
     Dates: start: 20210828, end: 20210926
  9. RILUZOLE [Suspect]
     Active Substance: RILUZOLE
     Route: 048
     Dates: start: 20210927, end: 20210928
  10. IBUDILAST [Suspect]
     Active Substance: IBUDILAST
     Indication: Amyotrophic lateral sclerosis
     Dates: start: 20210303, end: 20210324
  11. IBUDILAST [Suspect]
     Active Substance: IBUDILAST
     Dates: start: 20210324, end: 20210414
  12. IBUDILAST [Suspect]
     Active Substance: IBUDILAST
     Dates: start: 20210414, end: 20210506
  13. IBUDILAST [Suspect]
     Active Substance: IBUDILAST
     Dates: start: 20210507, end: 20210521
  14. IBUDILAST [Suspect]
     Active Substance: IBUDILAST
     Dates: start: 20210629, end: 20210702
  15. IBUDILAST [Suspect]
     Active Substance: IBUDILAST
     Dates: start: 20210703, end: 20210713
  16. IBUDILAST [Suspect]
     Active Substance: IBUDILAST
     Dates: start: 20210728, end: 20210818
  17. IBUDILAST [Suspect]
     Active Substance: IBUDILAST
     Dates: start: 20210828, end: 20210926
  18. IBUDILAST [Suspect]
     Active Substance: IBUDILAST
     Dates: start: 20210927, end: 20210928
  19. TAMOXIFEN [Suspect]
     Active Substance: TAMOXIFEN
     Indication: Amyotrophic lateral sclerosis
     Dates: start: 20210303, end: 20210324
  20. TAMOXIFEN [Suspect]
     Active Substance: TAMOXIFEN
     Dates: start: 20210324, end: 20210414
  21. TAMOXIFEN [Suspect]
     Active Substance: TAMOXIFEN
     Dates: start: 20210414, end: 20210506
  22. TAMOXIFEN [Suspect]
     Active Substance: TAMOXIFEN
     Dates: start: 20210507, end: 20210521
  23. TAMOXIFEN [Suspect]
     Active Substance: TAMOXIFEN
     Dates: start: 20210629, end: 20210702
  24. ROPINIROLE [Suspect]
     Active Substance: ROPINIROLE
     Indication: Amyotrophic lateral sclerosis
     Dates: start: 20210303, end: 20210324
  25. ROPINIROLE [Suspect]
     Active Substance: ROPINIROLE
     Dates: start: 20210324, end: 20210414
  26. ROPINIROLE [Suspect]
     Active Substance: ROPINIROLE
     Dates: start: 20210414, end: 20210506
  27. ROPINIROLE [Suspect]
     Active Substance: ROPINIROLE
     Dates: start: 20210507, end: 20210521
  28. ROPINIROLE [Suspect]
     Active Substance: ROPINIROLE
     Dates: start: 20210629, end: 20210702
  29. ROPINIROLE [Suspect]
     Active Substance: ROPINIROLE
     Dates: start: 20210703, end: 20210713
  30. SIMBRINZA [Suspect]
     Active Substance: BRIMONIDINE TARTRATE\BRINZOLAMIDE
     Dates: end: 202108

REACTIONS (7)
  - Hypotension [Recovered/Resolved]
  - Deep vein thrombosis [Recovered/Resolved]
  - Visual impairment [Unknown]
  - Disease progression [Unknown]
  - Headache [Unknown]
  - Heart rate increased [Unknown]
  - Nausea [Unknown]

NARRATIVE: CASE EVENT DATE: 20210401
